FAERS Safety Report 7683606-6 (Version None)
Quarter: 2011Q3

REPORT INFORMATION
  Report Type: 
  Country: None (occurrence: None)
  Receive Date: 20110815
  Receipt Date: 20110805
  Transmission Date: 20111222
  Serious: Yes (Hospitalization)
  Sender: FDA-Public Use
  Company Number: IT-ASTRAZENECA-2011SE42509

PATIENT
  Age: 13272 Day
  Sex: Female

DRUGS (3)
  1. XYLOCAINE [Suspect]
     Indication: CAESAREAN SECTION
     Route: 008
     Dates: start: 20110622, end: 20110622
  2. FENTANYL CITRATE [Suspect]
     Indication: CAESAREAN SECTION
     Route: 008
     Dates: start: 20110622, end: 20110622
  3. NAROPIN [Suspect]
     Indication: CAESAREAN SECTION
     Route: 008
     Dates: start: 20110622, end: 20110622

REACTIONS (1)
  - PARAPARESIS [None]
